FAERS Safety Report 22323304 (Version 1)
Quarter: 2023Q2

REPORT INFORMATION
  Report Type: Spontaneous
  Country: JP (occurrence: JP)
  Receive Date: 20230516
  Receipt Date: 20230516
  Transmission Date: 20230722
  Serious: Yes (Death, Other)
  Sender: FDA-Public Use
  Company Number: JP-GILEAD-2023-0626301

PATIENT
  Age: 74 Year
  Sex: Male

DRUGS (2)
  1. VEKLURY [Suspect]
     Active Substance: REMDESIVIR
     Indication: COVID-19
     Dosage: UNK
     Route: 065
     Dates: start: 20230415, end: 20230419
  2. VEKLURY [Suspect]
     Active Substance: REMDESIVIR
     Dosage: UNK
     Route: 065
     Dates: start: 20230428, end: 20230502

REACTIONS (3)
  - COVID-19 pneumonia [Fatal]
  - Ventricular tachycardia [Unknown]
  - Drug ineffective [Unknown]
